FAERS Safety Report 17975312 (Version 1)
Quarter: 2020Q3

REPORT INFORMATION
  Report Type: Report from Study
  Country: US (occurrence: US)
  Receive Date: 20200702
  Receipt Date: 20200702
  Transmission Date: 20201103
  Serious: No
  Sender: FDA-Public Use
  Company Number: NVSC2020US186789

PATIENT
  Sex: Female

DRUGS (1)
  1. XIIDRA [Suspect]
     Active Substance: LIFITEGRAST
     Indication: FOREIGN BODY SENSATION IN EYES
     Dosage: UNK, BID
     Route: 047
     Dates: start: 2019

REACTIONS (2)
  - Eyelid irritation [Unknown]
  - Foreign body sensation in eyes [Unknown]
